FAERS Safety Report 8578820-1 (Version None)
Quarter: 2012Q3

REPORT INFORMATION
  Report Type: 
  Country: None (occurrence: None)
  Receive Date: 20120808
  Receipt Date: 20120807
  Transmission Date: 20120928
  Serious: No
  Sender: FDA-Public Use
  Company Number: US-B.I. PHARMACEUTICALS,INC./RIDGEFIELD-2012-BP-13641BP

PATIENT
  Age: 77 Year
  Sex: Female

DRUGS (8)
  1. HYDROCHLOROTHIAZIDE [Concomitant]
     Indication: HYPERTENSION
     Dosage: 12 MG
     Route: 048
  2. ASPIRIN [Concomitant]
     Indication: HYPERTENSION
     Dosage: 81 MG
     Route: 048
  3. LOSARTAN POTASSIUM [Concomitant]
     Indication: HYPERTENSION
     Dosage: 100 MG
     Route: 048
  4. MULTAQUE [Concomitant]
     Indication: ATRIAL FIBRILLATION
     Dosage: 400 MG
     Route: 048
  5. PRADAXA [Suspect]
     Indication: ATRIAL FIBRILLATION
     Dosage: 150 MG
     Route: 048
     Dates: start: 20111205
  6. PANTOPRAZOLE [Concomitant]
     Indication: GASTROOESOPHAGEAL REFLUX DISEASE
     Dosage: 40 MG
     Route: 048
  7. BISOPOLOL [Concomitant]
     Indication: HYPERTENSION
  8. ZANTAC [Concomitant]
     Indication: GASTROOESOPHAGEAL REFLUX DISEASE
     Dosage: 150 MG
     Route: 048

REACTIONS (2)
  - DIARRHOEA [None]
  - MEDICATION RESIDUE [None]
